FAERS Safety Report 7785091-2 (Version None)
Quarter: 2011Q3

REPORT INFORMATION
  Report Type: 
  Country: None (occurrence: None)
  Receive Date: 20110929
  Receipt Date: 20110920
  Transmission Date: 20111222
  Serious: No
  Sender: FDA-Public Use
  Company Number: US-BIOGENIDEC-2011BI001739

PATIENT
  Sex: Female

DRUGS (2)
  1. TYSABRI [Suspect]
     Indication: MULTIPLE SCLEROSIS
     Route: 042
     Dates: start: 20101124, end: 20101222
  2. GILENYA [Concomitant]

REACTIONS (6)
  - WEIGHT DECREASED [None]
  - DRUG SPECIFIC ANTIBODY PRESENT [None]
  - PRURITUS [None]
  - TREMOR [None]
  - URTICARIA [None]
  - DECREASED APPETITE [None]
